FAERS Safety Report 16817304 (Version 1)
Quarter: 2019Q3

REPORT INFORMATION
  Report Type: Spontaneous
  Country: US (occurrence: US)
  Receive Date: 20190917
  Receipt Date: 20190917
  Transmission Date: 20191005
  Serious: No
  Sender: FDA-Public Use
  Company Number: US-PFIZER INC-2018478909

PATIENT
  Age: 70 Year
  Sex: Female

DRUGS (13)
  1. LYRICA [Suspect]
     Active Substance: PREGABALIN
     Indication: RESTLESS LEGS SYNDROME
     Dosage: 50 MG, DAILY (3 HOURS BEFORE BEDTIME)
     Route: 048
  2. VALACYCLOVIR [Concomitant]
     Active Substance: VALACYCLOVIR HYDROCHLORIDE
     Dosage: 500 MG, DAILY
     Route: 048
  3. VITAMIN D3 [Concomitant]
     Active Substance: CHOLECALCIFEROL
     Dosage: 1 DF, DAILY (TAKE 1 TABLET BY MOUTH DAILY)
     Route: 048
  4. LOSARTAN. [Concomitant]
     Active Substance: LOSARTAN
     Dosage: 100 MG, DAILY
     Route: 048
  5. FERROUS SULFATE. [Concomitant]
     Active Substance: FERROUS SULFATE
     Dosage: 325 MG, 3X/DAY (TAKE 1 TABLET (325 MG TOTAL) BY MOUTH 3 (THREE) TIMES A DAY WITH MEALS)
     Route: 048
  6. HYDROCHLOROTHIAZIDE. [Concomitant]
     Active Substance: HYDROCHLOROTHIAZIDE
     Indication: PERIPHERAL SWELLING
     Dosage: 12.5 MG, AS NEEDED
     Route: 048
  7. ALCOHOL SWABS [ETHANOL] [Concomitant]
     Dosage: UNK (INSTRUCTIONS FOR USE: USE TO INJECT INSULIN BID (TWO TIMES A DAY) AND TEST BLOOD SUGAR LEVELS)
  8. FLUTICASONE. [Concomitant]
     Active Substance: FLUTICASONE
     Dosage: 100 UG, DAILY (INSTRUCTIONS FOR USE: ADMINISTER 1 SPRAY INTO EACH NOSTRIL DAILY)
     Route: 045
  9. INSULIN DETEMIR [Concomitant]
     Active Substance: INSULIN DETEMIR
     Dosage: 38 IU, 2X/DAY
     Route: 058
  10. PRAMIPEXOLE. [Concomitant]
     Active Substance: PRAMIPEXOLE
     Indication: RESTLESS LEGS SYNDROME
     Dosage: UNK, 1X/DAY (TAKE ONE TO TWO TABLETS BY MOUTH EVERY EVENING)
     Route: 048
  11. SITAGLIPTIN [Concomitant]
     Active Substance: SITAGLIPTIN
     Dosage: 50 MG, DAILY
     Route: 048
  12. PREGABALIN. [Concomitant]
     Active Substance: PREGABALIN
     Indication: RESTLESS LEGS SYNDROME
     Dosage: 75 MG, 1X/DAY (1 CAPSULE (75 MG TOTAL) BY MOUTH NIGHTLY)
     Route: 048
  13. ATORVASTATIN [Concomitant]
     Active Substance: ATORVASTATIN
     Dosage: 10 MG, DAILY (INSTRUCTIONS FOR USE: TAKE 1 TABLET (10 MG TOTAL) BY MOUTH DAILY. TAKE INSTEAD OF 1/2)
     Route: 048

REACTIONS (4)
  - Product use in unapproved indication [Unknown]
  - Condition aggravated [Unknown]
  - Restless legs syndrome [Unknown]
  - Off label use [Unknown]
